FAERS Safety Report 24043291 (Version 1)
Quarter: 2024Q3

REPORT INFORMATION
  Report Type: Spontaneous
  Country: US (occurrence: US)
  Receive Date: 20240702
  Receipt Date: 20240702
  Transmission Date: 20241016
  Serious: Yes (Other)
  Sender: DR REDDYS
  Company Number: US-DRL-USA-LIT/USA/24/0009431

PATIENT
  Age: 5 Month
  Sex: Female

DRUGS (8)
  1. DOXORUBICIN [Suspect]
     Active Substance: DOXORUBICIN
     Indication: Primitive neuroectodermal tumour
     Dosage: 30?MG/M2 PER DAY WITH CONTINUOUS INFUSION?OVER THE COURSE OF 48H ON DAYS 2 AND 3 OF WEEKS 1, 4, AND
  2. CYCLOPHOSPHAMIDE [Suspect]
     Active Substance: CYCLOPHOSPHAMIDE
     Indication: Primitive neuroectodermal tumour
     Dosage: 600?MG/M2 ADMINISTERED ON DAY?2 OF WEEKS?7 AND 10
     Route: 042
  3. CYCLOPHOSPHAMIDE [Suspect]
     Active Substance: CYCLOPHOSPHAMIDE
     Dosage: 300?MG/M2 PER DAY WITH CONTINUOUS INFUSION OVER THE COURSE OF 72H ON DAYS?2, 3, AND 4 OF WEEKS 1, 13
     Route: 042
  4. TOPOTECAN [Suspect]
     Active Substance: TOPOTECAN HYDROCHLORIDE
     Indication: Primitive neuroectodermal tumour
     Dosage: 0.2?MG/M2 ON DAY 1 OF WEEKS 1, 2, 4, 7,AND 13 [INTRATHECAL]
  5. VINCRISTINE [Suspect]
     Active Substance: VINCRISTINE
     Indication: Primitive neuroectodermal tumour
     Dosage: 2?MG/M2 ON DAY?1 OF WEEKS 1 TO 13 AND WEEK?16 OF THERAPY
     Route: 042
  6. CISPLATIN [Suspect]
     Active Substance: CISPLATIN
     Indication: Primitive neuroectodermal tumour
     Dosage: 90?MG/M2 ON DAY?1 OF WEEKS 1, 4, 7, AND 10
  7. ETOPOSIDE [Suspect]
     Active Substance: ETOPOSIDE
     Indication: Primitive neuroectodermal tumour
     Dosage: 100?MG/M2 DAYS 1, 2, AND 3 OF WEEKS 4, 7, AND 10
     Route: 042
  8. DACTINOMYCIN [Suspect]
     Active Substance: DACTINOMYCIN
     Indication: Primitive neuroectodermal tumour
     Dosage: 1.2?MG/M2 ON DAYS 1, 2, 3, 4, AND 5 OF WEEK 16
     Route: 042

REACTIONS (2)
  - Venoocclusive liver disease [Unknown]
  - Product use in unapproved indication [Unknown]
